FAERS Safety Report 6291606-6 (Version None)
Quarter: 2009Q3

REPORT INFORMATION
  Report Type: 
  Country: None (occurrence: None)
  Receive Date: 20090730
  Receipt Date: 20090720
  Transmission Date: 20100115
  Serious: Yes (Other)
  Sender: FDA-Public Use
  Company Number: US-ELI_LILLY_AND_COMPANY-US200907004502

PATIENT
  Age: 62 Year
  Sex: Male

DRUGS (2)
  1. ZYPREXA [Suspect]
     Indication: ANXIETY
     Dosage: 30 MG, DAILY (1/D)
  2. CYMBALTA [Suspect]
     Indication: STRESS
     Dosage: 60 MG, DAILY (1/D)

REACTIONS (11)
  - FALL [None]
  - GASTROINTESTINAL HAEMORRHAGE [None]
  - HAEMORRHAGE [None]
  - HEARING IMPAIRED [None]
  - HEPATIC CIRRHOSIS [None]
  - HEPATIC FAILURE [None]
  - OFF LABEL USE [None]
  - OVERDOSE [None]
  - PLATELET COUNT DECREASED [None]
  - SEXUAL DYSFUNCTION [None]
  - SOMNOLENCE [None]
